FAERS Safety Report 4576274-3 (Version None)
Quarter: 2005Q1

REPORT INFORMATION
  Report Type: 
  Country: None (occurrence: None)
  Receive Date: 20050207
  Receipt Date: 20050121
  Transmission Date: 20050727
  Serious: Yes (Other)
  Sender: FDA-Public Use
  Company Number: S05-UKI-00351-01

PATIENT
  Age: 30 Year
  Sex: Female

DRUGS (1)
  1. CIPRALEX (ESCITALOPRAM) [Suspect]
     Indication: DEPRESSION
     Dosage: 10 MG QD PO
     Route: 048
     Dates: start: 20041217, end: 20041219

REACTIONS (4)
  - DIFFICULTY IN WALKING [None]
  - DISSOCIATION [None]
  - PARANOIA [None]
  - VISION BLURRED [None]
